FAERS Safety Report 15626076 (Version 1)
Quarter: 2018Q4

REPORT INFORMATION
  Report Type: Report from Study
  Country: US (occurrence: US)
  Receive Date: 20181116
  Receipt Date: 20181116
  Transmission Date: 20190205
  Serious: No
  Sender: FDA-Public Use
  Company Number: US-IPSEN BIOPHARMACEUTICALS, INC.-2018-00213

PATIENT
  Age: 14 Year
  Sex: Male

DRUGS (5)
  1. NUTROPIN [Suspect]
     Active Substance: SOMATROPIN
     Indication: GROWTH HORMONE DEFICIENCY
     Dosage: 0.31 MG/KG/WEEK, NUSPIN 20MG/2ML
     Route: 058
  2. NUTROPIN [Suspect]
     Active Substance: SOMATROPIN
     Route: 058
  3. OMEGA 3 [Concomitant]
     Active Substance: OMEGA-3 FATTY ACIDS
  4. NUTROPIN [Suspect]
     Active Substance: SOMATROPIN
     Indication: HYPOPITUITARISM
     Dosage: 0.32 MG/KG/WEEK
     Route: 058
     Dates: start: 20170602
  5. NUTROPIN [Suspect]
     Active Substance: SOMATROPIN
     Route: 058
     Dates: start: 20171220

REACTIONS (4)
  - Limb injury [Unknown]
  - Scoliosis [Unknown]
  - Humerus fracture [Unknown]
  - Joint injury [Unknown]

NARRATIVE: CASE EVENT DATE: 201709
